FAERS Safety Report 13883909 (Version 1)
Quarter: 2017Q3

REPORT INFORMATION
  Report Type: Spontaneous
  Country: US (occurrence: US)
  Receive Date: 20170815
  Receipt Date: 20170815
  Transmission Date: 20171127
  Serious: Yes (Life-Threatening, Hospitalization, Other)
  Sender: FDA-Public Use
  Company Number: None

PATIENT
  Age: 66 Year
  Sex: Male
  Weight: 67.5 kg

DRUGS (1)
  1. XARELTO [Suspect]
     Active Substance: RIVAROXABAN

REACTIONS (8)
  - Open globe injury [None]
  - Visual acuity reduced [None]
  - Eye pain [None]
  - Visual impairment [None]
  - Eye haemorrhage [None]
  - Headache [None]
  - Oedema [None]
  - Vision blurred [None]

NARRATIVE: CASE EVENT DATE: 20170628
